FAERS Safety Report 9927386 (Version 3)
Quarter: 2015Q1

REPORT INFORMATION
  Report Type: Spontaneous
  Country: SE (occurrence: SE)
  Receive Date: 20140226
  Receipt Date: 20150223
  Transmission Date: 20150721
  Serious: Yes (Hospitalization, Disabling)
  Sender: FDA-Public Use
  Company Number: SE-B.I. PHARMACEUTICALS,INC./RIDGEFIELD-2014-BI-07957SW

PATIENT
  Age: 62 Year
  Sex: Male

DRUGS (1)
  1. PRADAXA [Suspect]
     Active Substance: DABIGATRAN ETEXILATE MESYLATE
     Indication: ATRIAL FIBRILLATION
     Dosage: 300 MG
     Route: 048
     Dates: start: 20130904, end: 20131230

REACTIONS (3)
  - Renal failure [Recovered/Resolved with Sequelae]
  - Blood pressure fluctuation [Unknown]
  - Anaemia [Unknown]

NARRATIVE: CASE EVENT DATE: 20131223
